FAERS Safety Report 24436819 (Version 1)
Quarter: 2024Q4

REPORT INFORMATION
  Report Type: Report from Study
  Country: US (occurrence: US)
  Receive Date: 20241015
  Receipt Date: 20241015
  Transmission Date: 20250114
  Serious: No
  Sender: ROCHE
  Company Number: US-ROCHE-10000105572

PATIENT
  Age: 72 Year
  Sex: Female

DRUGS (1)
  1. OCREVUS [Suspect]
     Active Substance: OCRELIZUMAB
     Indication: Multiple sclerosis
     Route: 042

REACTIONS (5)
  - Food poisoning [Unknown]
  - COVID-19 [Recovered/Resolved]
  - Dry mouth [Unknown]
  - Chapped lips [Unknown]
  - Lip blister [Unknown]

NARRATIVE: CASE EVENT DATE: 20220501
